FAERS Safety Report 4394236-6 (Version None)
Quarter: 2004Q3

REPORT INFORMATION
  Report Type: 
  Country: None (occurrence: None)
  Receive Date: 20040707
  Receipt Date: 20040624
  Transmission Date: 20050211
  Serious: Yes (Other)
  Sender: FDA-Public Use
  Company Number: S04-USA-03695-01

PATIENT
  Age: 13 Year
  Sex: Male
  Weight: 64.8644 kg

DRUGS (2)
  1. CELEXA [Suspect]
     Indication: ASPERGER'S DISORDER
     Dosage: 40 MG QD PO
     Route: 048
     Dates: start: 20021101
  2. STRATTERA [Concomitant]

REACTIONS (1)
  - GYNAECOMASTIA [None]
